FAERS Safety Report 7612233-1 (Version None)
Quarter: 2011Q3

REPORT INFORMATION
  Report Type: 
  Country: None (occurrence: None)
  Receive Date: 20110715
  Receipt Date: 20110706
  Transmission Date: 20111222
  Serious: Yes (Death)
  Sender: FDA-Public Use
  Company Number: FR-GENENTECH-321265

PATIENT
  Sex: Male

DRUGS (2)
  1. MABTHERA [Suspect]
     Dosage: 1 G, DAYS 1+15
     Route: 042
     Dates: start: 20110530, end: 20110530
  2. MABTHERA [Suspect]
     Indication: HEPATITIS C
     Dosage: 375 MG/M2, 1/WEEK
     Route: 042
     Dates: start: 20100601

REACTIONS (2)
  - MYOCARDIAL INFARCTION [None]
  - CARDIAC ARREST [None]
